FAERS Safety Report 19022394 (Version 4)
Quarter: 2022Q2

REPORT INFORMATION
  Report Type: Report from Study
  Country: PE (occurrence: PE)
  Receive Date: 20210317
  Receipt Date: 20220505
  Transmission Date: 20220721
  Serious: Yes (Other)
  Sender: FDA-Public Use
  Company Number: PE-TAKEDA-2020TUS044563

PATIENT
  Sex: Male

DRUGS (6)
  1. BRENTUXIMAB VEDOTIN [Suspect]
     Active Substance: BRENTUXIMAB VEDOTIN
     Indication: Anaplastic large-cell lymphoma
     Dosage: 147 MILLIGRAM, Q3WEEKS
     Route: 042
     Dates: start: 20201002
  2. BRENTUXIMAB VEDOTIN [Suspect]
     Active Substance: BRENTUXIMAB VEDOTIN
     Dosage: 90 MILLIGRAM, Q3WEEKS
     Route: 042
     Dates: start: 20201102
  3. LOSARTAN [Concomitant]
     Active Substance: LOSARTAN
     Indication: Hypertension
     Dosage: 500 MILLIGRAM
     Route: 065
  4. HYDROCHLOROTHIAZIDE [Concomitant]
     Active Substance: HYDROCHLOROTHIAZIDE
     Dosage: UNK
     Route: 065
  5. ATENOLOL [Concomitant]
     Active Substance: ATENOLOL
     Dosage: 50 MILLIGRAM
     Route: 065
  6. ATACAND [Concomitant]
     Active Substance: CANDESARTAN CILEXETIL
     Indication: Hypertension
     Dosage: 50 MILLIGRAM
     Route: 065

REACTIONS (16)
  - Hepatitis [Not Recovered/Not Resolved]
  - Constipation [Not Recovered/Not Resolved]
  - Gingivitis [Unknown]
  - Transaminases increased [Not Recovered/Not Resolved]
  - Urethritis [Recovered/Resolved]
  - Decreased appetite [Unknown]
  - Fatigue [Unknown]
  - Nausea [Unknown]
  - Vomiting [Unknown]
  - Oral herpes [Recovered/Resolved]
  - Gastritis [Unknown]
  - Pain [Unknown]
  - Weight decreased [Recovering/Resolving]
  - Hepatic function abnormal [Recovered/Resolved]
  - Decreased activity [Unknown]
  - Ecchymosis [Unknown]
